FAERS Safety Report 18169814 (Version 2)
Quarter: 2020Q4

REPORT INFORMATION
  Report Type: Spontaneous
  Country: US (occurrence: US)
  Receive Date: 20200819
  Receipt Date: 20201007
  Transmission Date: 20210113
  Serious: Yes (Death, Hospitalization, Other)
  Sender: FDA-Public Use
  Company Number: US-009507513-2008USA009484

PATIENT
  Sex: Male
  Weight: 109.75 kg

DRUGS (2)
  1. JANUVIA [Suspect]
     Active Substance: SITAGLIPTIN PHOSPHATE
     Dosage: 100 MG, ONCE DAILY
     Dates: start: 20140622, end: 20140917
  2. JANUVIA [Suspect]
     Active Substance: SITAGLIPTIN PHOSPHATE
     Dosage: 50 MG, ONCE DAILY
     Route: 048
     Dates: start: 20140522, end: 20140622

REACTIONS (31)
  - Vomiting [Recovered/Resolved]
  - Diabetic complication [Unknown]
  - Paraesthesia [Unknown]
  - Hypoaesthesia [Unknown]
  - Pancreatic carcinoma metastatic [Unknown]
  - Sedative therapy [Unknown]
  - Cachexia [Unknown]
  - Asthenia [Unknown]
  - Discomfort [Unknown]
  - Nephrolithiasis [Unknown]
  - Nausea [Recovered/Resolved]
  - Giant cell arteritis [Unknown]
  - General physical condition abnormal [Unknown]
  - Cerebrovascular accident [Unknown]
  - Asthenia [Recovered/Resolved]
  - Vomiting [Unknown]
  - Diarrhoea [Unknown]
  - Pain [Unknown]
  - Dizziness [Unknown]
  - Ill-defined disorder [Unknown]
  - Death [Fatal]
  - Adverse drug reaction [Unknown]
  - Nausea [Unknown]
  - Skin disorder [Unknown]
  - Alopecia [Unknown]
  - Nephrocalcinosis [Unknown]
  - Neuropathy peripheral [Unknown]
  - Pancreatitis [Unknown]
  - Nerve injury [Unknown]
  - Essential hypertension [Unknown]
  - Abdominal tenderness [Unknown]

NARRATIVE: CASE EVENT DATE: 2017
